FAERS Safety Report 5985134-2 (Version None)
Quarter: 2008Q4

REPORT INFORMATION
  Report Type: 
  Country: None (occurrence: None)
  Receive Date: 20081203
  Receipt Date: 20081120
  Transmission Date: 20090506
  Serious: Yes (Hospitalization)
  Sender: FDA-Public Use
  Company Number: 2008AL011901

PATIENT
  Age: 74 Year
  Sex: Male

DRUGS (3)
  1. CILOSTAZOL [Suspect]
     Indication: POSTOPERATIVE THROMBOSIS
     Dosage: 100 MG;PO
     Route: 048
     Dates: start: 20060101, end: 20081015
  2. BLOOD PRESSURE MEDICINE [Concomitant]
  3. BREATHING MEDICATION [Concomitant]

REACTIONS (6)
  - BLOOD CHOLESTEROL INCREASED [None]
  - BLOOD GLUCOSE DECREASED [None]
  - CEREBROVASCULAR ACCIDENT [None]
  - DYSPNOEA [None]
  - SOMNOLENCE [None]
  - TREMOR [None]
